FAERS Safety Report 6301288-2 (Version None)
Quarter: 2009Q3

REPORT INFORMATION
  Report Type: 
  Country: None (occurrence: None)
  Receive Date: 20090805
  Receipt Date: 20090805
  Transmission Date: 20100115
  Serious: Yes (Other)
  Sender: FDA-Public Use
  Company Number: None

PATIENT
  Age: 50 Year
  Sex: Female
  Weight: 57.6068 kg

DRUGS (1)
  1. HALFLYTELY BRAINTREE [Suspect]
     Indication: COLONOSCOPY
     Dosage: 8 GLASSES  ~ 12 HOURS PO
     Route: 048
     Dates: start: 20090730, end: 20090731

REACTIONS (3)
  - DIARRHOEA [None]
  - HYPERHIDROSIS [None]
  - LOSS OF CONSCIOUSNESS [None]
